FAERS Safety Report 11081440 (Version 4)
Quarter: 2020Q2

REPORT INFORMATION
  Report Type: Spontaneous
  Country: US (occurrence: US)
  Receive Date: 20150501
  Receipt Date: 20200430
  Transmission Date: 20200713
  Serious: No
  Sender: FDA-Public Use
  Company Number: US-ABBVIE-14P-163-1307238-00

PATIENT
  Sex: Female

DRUGS (3)
  1. CALMOSEPTINE [Concomitant]
     Active Substance: MENTHOL\ZINC OXIDE
     Indication: PRODUCT USED FOR UNKNOWN INDICATION
  2. PRILOSEC [Concomitant]
     Active Substance: OMEPRAZOLE MAGNESIUM
     Indication: PRODUCT USED FOR UNKNOWN INDICATION
     Route: 065
  3. CREON [Suspect]
     Active Substance: PANCRELIPASE AMYLASE\PANCRELIPASE LIPASE\PANCRELIPASE PROTEASE
     Indication: PRODUCT USED FOR UNKNOWN INDICATION
     Route: 065

REACTIONS (20)
  - Dyspepsia [Unknown]
  - Nausea [Unknown]
  - Diarrhoea [Unknown]
  - Gait disturbance [Unknown]
  - Loss of personal independence in daily activities [Unknown]
  - Food intolerance [Unknown]
  - Malaise [Unknown]
  - Malnutrition [Unknown]
  - Eating disorder [Unknown]
  - Skin injury [Unknown]
  - Pain [Recovered/Resolved]
  - Vomiting [Unknown]
  - Type 2 diabetes mellitus [Unknown]
  - Gastrointestinal sounds abnormal [Unknown]
  - Lactose intolerance [Unknown]
  - Abdominal pain upper [Unknown]
  - Emotional distress [Unknown]
  - Flatulence [Unknown]
  - Pain [Unknown]
  - Decreased appetite [Unknown]
